FAERS Safety Report 13163835 (Version 2)
Quarter: 2017Q1

REPORT INFORMATION
  Report Type: Spontaneous
  Country: DE (occurrence: DE)
  Receive Date: 20170130
  Receipt Date: 20170215
  Transmission Date: 20170428
  Serious: Yes (Hospitalization)
  Sender: FDA-Public Use
  Company Number: DE-UNICHEM LABORATORIES LIMITED-UCM201701-000019

PATIENT
  Age: 54 Year
  Sex: Female

DRUGS (14)
  1. DIVALPROEX SODIUM. [Suspect]
     Active Substance: DIVALPROEX SODIUM
     Dates: start: 2012
  2. DIVALPROEX SODIUM. [Suspect]
     Active Substance: DIVALPROEX SODIUM
     Dates: start: 2013
  3. OLANZAPINE. [Concomitant]
     Active Substance: OLANZAPINE
  4. SERTRALINE [Concomitant]
     Active Substance: SERTRALINE HYDROCHLORIDE
  5. MIRTAZAPINE. [Concomitant]
     Active Substance: MIRTAZAPINE
  6. DIVALPROEX SODIUM. [Suspect]
     Active Substance: DIVALPROEX SODIUM
     Dates: start: 2014
  7. QUETIAPINE. [Suspect]
     Active Substance: QUETIAPINE
  8. DIVALPROEX SODIUM. [Suspect]
     Active Substance: DIVALPROEX SODIUM
  9. QUETIAPINE. [Suspect]
     Active Substance: QUETIAPINE
  10. QUETIAPINE. [Suspect]
     Active Substance: QUETIAPINE
  11. SERTRALINE [Concomitant]
     Active Substance: SERTRALINE HYDROCHLORIDE
  12. PREGABALIN. [Concomitant]
     Active Substance: PREGABALIN
  13. PREGABALIN. [Concomitant]
     Active Substance: PREGABALIN
  14. ARIPIPRAZOLE. [Concomitant]
     Active Substance: ARIPIPRAZOLE

REACTIONS (3)
  - Extrapyramidal disorder [Recovered/Resolved]
  - Drug interaction [Recovered/Resolved]
  - Cognitive disorder [Recovered/Resolved]
